FAERS Safety Report 8486034-9 (Version None)
Quarter: 2012Q3

REPORT INFORMATION
  Report Type: 
  Country: None (occurrence: None)
  Receive Date: 20120703
  Receipt Date: 20120618
  Transmission Date: 20120928
  Serious: Yes (Hospitalization)
  Sender: FDA-Public Use
  Company Number: DE-PFIZER INC-2012150751

PATIENT
  Age: 71 Year
  Sex: Female

DRUGS (18)
  1. LYRICA [Suspect]
     Dosage: 50 MG, UNK
     Route: 048
     Dates: start: 20120209
  2. TORASEMIDE [Suspect]
     Dosage: 50 MG, DAILY
     Route: 048
  3. VOLTAREN [Concomitant]
     Dosage: 150 MG, DAILY
     Dates: start: 20120205, end: 20120208
  4. MOVIPREP [Concomitant]
     Dosage: THREE BAGS
     Dates: start: 20120208, end: 20120208
  5. LYRICA [Suspect]
     Dosage: 100 MG, UNK
     Route: 048
     Dates: start: 20120208, end: 20120208
  6. PROTHIPENDYL [Suspect]
     Dosage: 80 MG, DAILY
     Route: 048
     Dates: start: 20120131
  7. PANTOPRAZOLE [Concomitant]
     Dosage: 40 MG, DAILY
     Dates: start: 20120205
  8. PIPAMPERONE [Suspect]
     Dosage: 160 MG, DAILY
     Route: 048
     Dates: start: 20120207, end: 20120208
  9. ZEBETA [Suspect]
     Dosage: 2.5 MG, DAILY
     Route: 048
  10. LYRICA [Suspect]
     Indication: HYPERTENSION
     Dosage: 50 MG, DAILY
     Route: 048
     Dates: start: 20120127, end: 20120207
  11. SEROQUEL [Suspect]
     Dosage: 100 MG, DAILY
     Route: 048
  12. SIMVASTATIN [Concomitant]
     Dosage: 40 MG, DAILY
  13. GLIQUIDONE [Concomitant]
     Dosage: 15 MG, DAILY
  14. ACETYLSALICYLIC ACID [Concomitant]
     Dosage: 100 MG, DAILY
  15. RAMIPRIL [Suspect]
     Indication: PRODUCT USED FOR UNKNOWN INDICATION
     Dosage: 2.5 MG, DAILY
     Route: 048
  16. MIRTAZAPINE [Suspect]
     Dosage: 15 MG, DAILY
     Route: 048
     Dates: start: 20120126
  17. CLONAZEPAM [Concomitant]
     Dosage: 1 MG, DAILY
  18. PROTHIPENDYL [Suspect]
     Indication: PRODUCT USED FOR UNKNOWN INDICATION
     Dosage: 40 MG, SINGLE
     Route: 048
     Dates: start: 20120130, end: 20120130

REACTIONS (2)
  - DIZZINESS [None]
  - HYPOTENSION [None]
